FAERS Safety Report 20845962 (Version 2)
Quarter: 2022Q3

REPORT INFORMATION
  Report Type: Report from Study
  Country: CA (occurrence: CA)
  Receive Date: 20220518
  Receipt Date: 20220721
  Transmission Date: 20221026
  Serious: Yes (Hospitalization, Other)
  Sender: FDA-Public Use
  Company Number: CA-ABBVIE-22K-028-4250105-00

PATIENT
  Sex: Male

DRUGS (3)
  1. HUMIRA [Suspect]
     Active Substance: ADALIMUMAB
     Indication: Crohn^s disease
     Route: 058
     Dates: start: 20201105, end: 202203
  2. HUMIRA [Suspect]
     Active Substance: ADALIMUMAB
     Route: 058
  3. HUMIRA [Suspect]
     Active Substance: ADALIMUMAB
     Route: 058

REACTIONS (12)
  - Gastrointestinal stoma complication [Unknown]
  - Stoma creation [Unknown]
  - Intestinal operation [Recovering/Resolving]
  - COVID-19 [Unknown]
  - Sepsis [Not Recovered/Not Resolved]
  - Abscess [Unknown]
  - Drug ineffective [Not Recovered/Not Resolved]
  - Post procedural diarrhoea [Unknown]
  - Incision site pain [Unknown]
  - Scar [Unknown]
  - Acne [Unknown]
  - Abdominal pain [Unknown]

NARRATIVE: CASE EVENT DATE: 20220101
